FAERS Safety Report 4343029-4 (Version None)
Quarter: 2004Q2

REPORT INFORMATION
  Report Type: 
  Country: None (occurrence: None)
  Receive Date: 20040421
  Receipt Date: 20020701
  Transmission Date: 20050107
  Serious: Yes (Hospitalization)
  Sender: FDA-Public Use
  Company Number: GB-ROCHE-316190

PATIENT
  Age: 56 Year
  Sex: Female
  Weight: 63.4 kg

DRUGS (7)
  1. PEG-INTERFERON ALFA 2A (RO 25-8310) [Suspect]
     Dosage: DURATION REPORTED AS 1.83 MONTHS.
     Route: 058
     Dates: start: 20020503, end: 20020627
  2. RIBAVIRIN [Suspect]
     Route: 048
     Dates: start: 20020503, end: 20020523
  3. DOTHIEPIN HYDROCHLORIDE [Concomitant]
     Dates: start: 19940615
  4. PREMARIN [Concomitant]
     Dates: start: 19940615
  5. DICLOFENAC SODIUM [Concomitant]
     Dates: start: 20000615
  6. MEBEVERINE [Concomitant]
     Dates: start: 20010615
  7. CO-PROXAMOL [Concomitant]
     Dates: start: 20020522, end: 20020701

REACTIONS (3)
  - FACIAL PALSY [None]
  - PAIN IN JAW [None]
  - VISUAL ACUITY REDUCED [None]
